FAERS Safety Report 25081102 (Version 1)
Quarter: 2025Q1

REPORT INFORMATION
  Report Type: Spontaneous
  Country: ES (occurrence: ES)
  Receive Date: 20250315
  Receipt Date: 20250315
  Transmission Date: 20250409
  Serious: Yes (Other)
  Sender: AMGEN
  Company Number: ES-AMGEN-ESPSP2025048613

PATIENT
  Sex: Female

DRUGS (1)
  1. PROLIA [Suspect]
     Active Substance: DENOSUMAB
     Indication: Product used for unknown indication
     Route: 065

REACTIONS (4)
  - Spinal fracture [Unknown]
  - Fall [Unknown]
  - Rib fracture [Unknown]
  - Tooth fracture [Unknown]

NARRATIVE: CASE EVENT DATE: 20230101
